FAERS Safety Report 9695461 (Version 1)
Quarter: 2013Q4

REPORT INFORMATION
  Report Type: Spontaneous
  Country: US (occurrence: None)
  Receive Date: 20131118
  Receipt Date: 20131118
  Transmission Date: 20140711
  Serious: Yes (Life-Threatening, Hospitalization)
  Sender: FDA-Public Use
  Company Number: None

PATIENT
  Age: 28 Month
  Sex: Male
  Weight: 12.7 kg

DRUGS (1)
  1. ELIDEL [Suspect]
     Indication: ECZEMA
     Dosage: 2 TIMES ?TWICE DAILY?APPLIED TO A SURFACE USUALLY THE SKIN

REACTIONS (1)
  - Acute lymphocytic leukaemia [None]
